FAERS Safety Report 6993971-0 (Version None)
Quarter: 2010Q3

REPORT INFORMATION
  Report Type: 
  Country: None (occurrence: None)
  Receive Date: 20100917
  Receipt Date: 20091020
  Transmission Date: 20110219
  Serious: No
  Sender: FDA-Public Use
  Company Number: US-ASTRAZENECA-2007UW12090

PATIENT
  Age: 11810 Day
  Sex: Female
  Weight: 104.8 kg

DRUGS (31)
  1. SEROQUEL [Suspect]
     Indication: ASPERGER'S DISORDER
     Dosage: 25 MG -200 MG
     Route: 048
     Dates: start: 19990128
  2. SEROQUEL [Suspect]
     Indication: SLEEP DISORDER
     Dosage: 25 MG -200 MG
     Route: 048
     Dates: start: 19990128
  3. SEROQUEL [Suspect]
     Route: 048
     Dates: start: 20050217, end: 20050627
  4. SEROQUEL [Suspect]
     Route: 048
     Dates: start: 20050217, end: 20050627
  5. SEROQUEL [Suspect]
     Dosage: 75 MG- 225 MG
     Route: 048
     Dates: start: 20050120, end: 20050805
  6. SEROQUEL [Suspect]
     Dosage: 75 MG- 225 MG
     Route: 048
     Dates: start: 20050120, end: 20050805
  7. NEURONTIN [Concomitant]
     Dosage: 300 MG - 600 MG
     Dates: start: 19990128
  8. ANAFRANIL [Concomitant]
     Dates: start: 19990128
  9. ATIVAN [Concomitant]
     Dates: start: 19960724
  10. COGENTIN [Concomitant]
     Dates: start: 19960724
  11. RISPERDAL CONSTA [Concomitant]
     Indication: ASPERGER'S DISORDER
     Dates: start: 19960724
  12. RISPERDAL CONSTA [Concomitant]
     Indication: SLEEP DISORDER
     Dates: start: 19960724
  13. RISPERDAL CONSTA [Concomitant]
     Dates: start: 20060225, end: 20060403
  14. RISPERDAL CONSTA [Concomitant]
     Dates: start: 20060225, end: 20060403
  15. CLONAPIN/KLONOPIN [Concomitant]
     Dosage: 1 MG - 2 MG
     Dates: start: 19960724
  16. MELLARIL [Concomitant]
     Dates: start: 19960724
  17. DEPAKOTE ER [Concomitant]
     Dosage: 500 MG -1000 MG
     Dates: start: 19960804
  18. PAXIL CR [Concomitant]
     Dates: start: 20020807
  19. TOPAMAX [Concomitant]
     Dates: start: 20050101
  20. CLONIDINE [Concomitant]
     Dosage: 0.1 MG 1/2 PILL B.I.D
     Dates: start: 20050511
  21. LEXAPRO [Concomitant]
     Dates: start: 20050511
  22. ABILIFY [Concomitant]
     Dates: start: 20030101, end: 20060101
  23. CLOZARIL [Concomitant]
  24. GEODON [Concomitant]
     Dates: start: 20030101
  25. HALDOL [Concomitant]
     Dates: start: 19800101
  26. STELAZINE [Concomitant]
     Dates: start: 20060701
  27. THORAZINE [Concomitant]
     Dates: start: 20020101, end: 20050101
  28. TRILAFON [Concomitant]
  29. TRIAVIL [Concomitant]
  30. LORAZEPAM [Concomitant]
     Dates: start: 20060101
  31. ZOLOFT [Concomitant]
     Dosage: 25-50 MG
     Dates: start: 20030101

REACTIONS (2)
  - NASOPHARYNGITIS [None]
  - TYPE 2 DIABETES MELLITUS [None]
